FAERS Safety Report 16138169 (Version 1)
Quarter: 2019Q2

REPORT INFORMATION
  Report Type: Spontaneous
  Country: US (occurrence: US)
  Receive Date: 20190401
  Receipt Date: 20190401
  Transmission Date: 20190711
  Serious: No
  Sender: FDA-Public Use
  Company Number: US-ASTRAZENECA-2019SE46466

PATIENT

DRUGS (25)
  1. ALPRAZOLAM. [Concomitant]
     Active Substance: ALPRAZOLAM
     Dosage: 0.5DF AS REQUIRED
     Route: 048
     Dates: start: 20181219
  2. NORTRIPTYLINE [Concomitant]
     Active Substance: NORTRIPTYLINE
  3. DIPHENHYDRAMINE HYDROCHLORIDE. [Concomitant]
     Active Substance: DIPHENHYDRAMINE HYDROCHLORIDE
  4. ZOMIG [Suspect]
     Active Substance: ZOLMITRIPTAN
     Dosage: UNKNOWN
     Route: 065
  5. LYRICA [Concomitant]
     Active Substance: PREGABALIN
     Indication: MIGRAINE
     Dosage: 1 CAP QAM, 2 CAP QPM
     Route: 048
     Dates: start: 20181219
  6. DEMEROL [Concomitant]
     Active Substance: MEPERIDINE HYDROCHLORIDE
  7. NEURONTIN [Concomitant]
     Active Substance: GABAPENTIN
  8. TYLENOL [Concomitant]
     Active Substance: ACETAMINOPHEN
  9. DEPAKOTE [Concomitant]
     Active Substance: DIVALPROEX SODIUM
  10. ULTRAM [Concomitant]
     Active Substance: TRAMADOL HYDROCHLORIDE
  11. METOPROLOL SUCCINATE. [Suspect]
     Active Substance: METOPROLOL SUCCINATE
     Dosage: UNKNOWN
     Route: 048
  12. CLEOCIN [Concomitant]
     Active Substance: CLINDAMYCIN PHOSPHATE
  13. VIOXX [Concomitant]
     Active Substance: ROFECOXIB
  14. OXCARBAZEPINE. [Concomitant]
     Active Substance: OXCARBAZEPINE
  15. ROBINUL [Concomitant]
     Active Substance: GLYCOPYRROLATE
  16. TOPIRAMATE. [Concomitant]
     Active Substance: TOPIRAMATE
  17. ZONISAMIDE. [Concomitant]
     Active Substance: ZONISAMIDE
  18. HYDROCHLOROTHIAZIDE. [Suspect]
     Active Substance: HYDROCHLOROTHIAZIDE
     Dosage: UNKNOWN
     Route: 065
  19. PROZAC [Concomitant]
     Active Substance: FLUOXETINE HYDROCHLORIDE
  20. RELPAX [Concomitant]
     Active Substance: ELETRIPTAN HYDROBROMIDE
  21. DILTIAZEM. [Concomitant]
     Active Substance: DILTIAZEM
  22. NAPROXEN. [Concomitant]
     Active Substance: NAPROXEN
  23. PROCARDIA [Concomitant]
     Active Substance: NIFEDIPINE
  24. VALIUM [Concomitant]
     Active Substance: DIAZEPAM
  25. IMITREX [Concomitant]
     Active Substance: SUMATRIPTAN SUCCINATE

REACTIONS (2)
  - Hypotension [Unknown]
  - Drug ineffective [Unknown]
